FAERS Safety Report 19046870 (Version 2)
Quarter: 2021Q3

REPORT INFORMATION
  Report Type: Report from Study
  Country: None (occurrence: CO)
  Receive Date: 20210322
  Receipt Date: 20210727
  Transmission Date: 20211014
  Serious: Yes (Other)
  Sender: FDA-Public Use
  Company Number: CO-ABBVIE-21K-036-3789689-00

PATIENT
  Age: 66 Year
  Sex: Female
  Weight: 52 kg

DRUGS (2)
  1. HUMIRA [Suspect]
     Active Substance: ADALIMUMAB
     Indication: RHEUMATOID ARTHRITIS
     Route: 058
     Dates: end: 20210112
  2. HUMIRA [Suspect]
     Active Substance: ADALIMUMAB
     Indication: RHEUMATOID ARTHRITIS
     Route: 058
     Dates: start: 20081111

REACTIONS (7)
  - Platelet count decreased [Recovered/Resolved]
  - Fall [Unknown]
  - White blood cell count increased [Recovering/Resolving]
  - Rheumatoid arthritis [Recovering/Resolving]
  - Tooth disorder [Recovered/Resolved]
  - Gingival disorder [Recovered/Resolved]
  - Product prescribing error [Recovering/Resolving]

NARRATIVE: CASE EVENT DATE: 2019
